FAERS Safety Report 5385327-1 (Version None)
Quarter: 2007Q3

REPORT INFORMATION
  Report Type: 
  Country: None (occurrence: None)
  Receive Date: 20070709
  Receipt Date: 20070709
  Transmission Date: 20080115
  Serious: Yes (Hospitalization)
  Sender: FDA-Public Use
  Company Number: None

PATIENT
  Age: 55 Year
  Sex: Female

DRUGS (1)
  1. DOXYCYCLINE [Suspect]
     Indication: ABDOMINAL PAIN
     Dosage: 100 MG Q12H IV
     Route: 042
     Dates: start: 20070507, end: 20070509

REACTIONS (1)
  - PLATELET COUNT DECREASED [None]
